FAERS Safety Report 18873662 (Version 3)
Quarter: 2021Q3

REPORT INFORMATION
  Report Type: Report from Study
  Country: None (occurrence: NL)
  Receive Date: 20210210
  Receipt Date: 20210819
  Transmission Date: 20211014
  Serious: Yes (Other)
  Sender: FDA-Public Use
  Company Number: NL-ABBVIE-19K-114-2933298-00

PATIENT
  Age: 73 Year
  Sex: Male
  Weight: 82.4 kg

DRUGS (11)
  1. SINEMET [Concomitant]
     Active Substance: CARBIDOPA\LEVODOPA
     Indication: PARKINSON^S DISEASE
     Dosage: SINEMET CR
  2. DOPAMINE AGONISTS [Concomitant]
     Active Substance: UNSPECIFIED INGREDIENT
     Indication: PARKINSON^S DISEASE
  3. DUODOPA [Suspect]
     Active Substance: CARBIDOPA\LEVODOPA
     Indication: PARKINSON^S DISEASE
     Dosage: MD 10, CD 4 TO 4.2, ED 2
     Route: 050
     Dates: start: 20190910, end: 2019
  4. SIFROL [Concomitant]
     Active Substance: PRAMIPEXOLE
     Indication: PARKINSON^S DISEASE
  5. DUODOPA [Suspect]
     Active Substance: CARBIDOPA\LEVODOPA
     Dosage: INCREASED CD BY 0.1 ML/HR.
     Route: 050
     Dates: start: 2019, end: 2019
  6. LEVODOPA [Concomitant]
     Active Substance: LEVODOPA
     Indication: PARKINSON^S DISEASE
  7. DUODOPA [Suspect]
     Active Substance: CARBIDOPA\LEVODOPA
     Dosage: MD: 10 CD: 4.4 ED: 2.0, REMAINS AT 16 HOURS
     Route: 050
     Dates: start: 2019
  8. DUODOPA [Suspect]
     Active Substance: CARBIDOPA\LEVODOPA
     Dosage: MD: 10 ML CD: 4.5 ML/H ED: 2.0 ML, REMAINS AT 16 HOURS
     Route: 050
  9. DUODOPA [Suspect]
     Active Substance: CARBIDOPA\LEVODOPA
     Dosage: MD 10.0 ML; CD 4.5 ML/H; ED 2.0 ML
     Route: 050
  10. MADOPAR [Concomitant]
     Active Substance: BENSERAZIDE HYDROCHLORIDE\LEVODOPA
     Indication: PRODUCT USED FOR UNKNOWN INDICATION
     Dosage: IF NECESSARY
  11. LEVODOPA/CARBIDOPA [Concomitant]
     Active Substance: CARBIDOPA\LEVODOPA
     Indication: PRODUCT USED FOR UNKNOWN INDICATION
     Dosage: LEVODOPA/CARBIDOPA RET, TWICE

REACTIONS (48)
  - Mobility decreased [Recovered/Resolved]
  - Underdose [Recovered/Resolved]
  - Visual impairment [Not Recovered/Not Resolved]
  - Nightmare [Not Recovered/Not Resolved]
  - Fatigue [Not Recovered/Not Resolved]
  - Mobility decreased [Not Recovered/Not Resolved]
  - Disorientation [Not Recovered/Not Resolved]
  - Memory impairment [Not Recovered/Not Resolved]
  - Urinary tract infection [Recovered/Resolved]
  - Loss of personal independence in daily activities [Not Recovered/Not Resolved]
  - Fall [Recovering/Resolving]
  - Unevaluable event [Not Recovered/Not Resolved]
  - Bradykinesia [Not Recovered/Not Resolved]
  - Hallucination [Recovered/Resolved]
  - Confusional state [Not Recovered/Not Resolved]
  - On and off phenomenon [Not Recovered/Not Resolved]
  - Nocturia [Recovered/Resolved]
  - Motor dysfunction [Recovering/Resolving]
  - Nightmare [Recovered/Resolved]
  - Therapeutic response shortened [Recovered/Resolved]
  - Somnolence [Not Recovered/Not Resolved]
  - Somnolence [Not Recovered/Not Resolved]
  - Walking aid user [Not Recovered/Not Resolved]
  - Blindness unilateral [Not Recovered/Not Resolved]
  - Emotional distress [Not Recovered/Not Resolved]
  - Dyschezia [Recovered/Resolved]
  - Hypersomnia [Not Recovered/Not Resolved]
  - Urinary incontinence [Not Recovered/Not Resolved]
  - Abnormal dreams [Not Recovered/Not Resolved]
  - Fatigue [Not Recovered/Not Resolved]
  - Weight decreased [Recovered/Resolved]
  - Illness [Recovered/Resolved]
  - Tension [Recovering/Resolving]
  - Restlessness [Recovering/Resolving]
  - Speech disorder [Unknown]
  - Cognitive disorder [Recovering/Resolving]
  - Dyskinesia [Recovering/Resolving]
  - Gait disturbance [Not Recovered/Not Resolved]
  - Dyschezia [Recovered/Resolved]
  - Muscle rigidity [Not Recovered/Not Resolved]
  - Cognitive disorder [Not Recovered/Not Resolved]
  - Aphasia [Not Recovered/Not Resolved]
  - Visual impairment [Not Recovered/Not Resolved]
  - Freezing phenomenon [Not Recovered/Not Resolved]
  - Nocturia [Not Recovered/Not Resolved]
  - Memory impairment [Recovered/Resolved]
  - On and off phenomenon [Recovered/Resolved]
  - Therapeutic response shortened [Recovered/Resolved]

NARRATIVE: CASE EVENT DATE: 2019
